FAERS Safety Report 18511129 (Version 1)
Quarter: 2020Q4

REPORT INFORMATION
  Report Type: Spontaneous
  Country: JP (occurrence: JP)
  Receive Date: 20201117
  Receipt Date: 20201117
  Transmission Date: 20210114
  Serious: Yes (Other)
  Sender: FDA-Public Use
  Company Number: JP-CHEPLA-C20203321

PATIENT
  Age: 84 Year
  Sex: Male

DRUGS (2)
  1. DENOSINE [GANCICLOVIR] [Suspect]
     Active Substance: GANCICLOVIR
     Route: 041
     Dates: start: 20201030
  2. PENTASA [Concomitant]
     Active Substance: MESALAMINE
     Dates: start: 20201026

REACTIONS (5)
  - Drug-induced liver injury [Unknown]
  - Pancytopenia [Unknown]
  - Blood alkaline phosphatase increased [Unknown]
  - Aspartate aminotransferase increased [Unknown]
  - Alanine aminotransferase increased [Unknown]
